FAERS Safety Report 20980354 (Version 1)
Quarter: 2022Q2

REPORT INFORMATION
  Report Type: Spontaneous
  Country: CA (occurrence: CA)
  Receive Date: 20220620
  Receipt Date: 20220620
  Transmission Date: 20220721
  Serious: Yes (Death, Other)
  Sender: FDA-Public Use
  Company Number: CA-CHEPLA-2022004841

PATIENT
  Sex: Male

DRUGS (13)
  1. CLONAZEPAM [Suspect]
     Active Substance: CLONAZEPAM
     Indication: Pain
     Route: 065
  2. ACETAMINOPHEN\OXYCODONE HYDROCHLORIDE [Suspect]
     Active Substance: ACETAMINOPHEN\OXYCODONE HYDROCHLORIDE
     Indication: Pain
     Route: 065
  3. ACETAMINOPHEN\OXYCODONE HYDROCHLORIDE\OXYCODONE TEREPHTHALATE [Suspect]
     Active Substance: ACETAMINOPHEN\OXYCODONE HYDROCHLORIDE\OXYCODONE TEREPHTHALATE
     Indication: Pain
     Route: 065
  4. AMITRIPTYLINE [Suspect]
     Active Substance: AMITRIPTYLINE
     Indication: Pain
     Route: 065
  5. DOXEPIN [Suspect]
     Active Substance: DOXEPIN
     Indication: Pain
     Route: 065
  6. LUVOX [Suspect]
     Active Substance: FLUVOXAMINE MALEATE
     Indication: Pain
     Route: 065
  7. MS CONTIN [Suspect]
     Active Substance: MORPHINE SULFATE
     Indication: Product used for unknown indication
     Dosage: TABLET-EXTENDED RELEASE
     Route: 048
  8. NORTRIPTYLINE [Suspect]
     Active Substance: NORTRIPTYLINE
     Indication: Pain
     Route: 065
  9. OXYCODONE HYDROCHLORIDE [Suspect]
     Active Substance: OXYCODONE HYDROCHLORIDE
     Indication: Product used for unknown indication
     Route: 065
  10. OXYCONTIN [Suspect]
     Active Substance: OXYCODONE HYDROCHLORIDE
     Indication: Product used for unknown indication
     Route: 048
  11. SENOKOT [Suspect]
     Active Substance: SENNOSIDES
     Indication: Product used for unknown indication
     Route: 065
  12. TORADOL [Suspect]
     Active Substance: KETOROLAC TROMETHAMINE
     Indication: Pain
     Route: 065
  13. TYLENOL WITH CODEINE [Suspect]
     Active Substance: ACETAMINOPHEN\CODEINE PHOSPHATE
     Indication: Pain
     Route: 065

REACTIONS (37)
  - Aggression [Fatal]
  - Cold sweat [Fatal]
  - Completed suicide [Fatal]
  - Constipation [Fatal]
  - Depression [Fatal]
  - Dissociation [Fatal]
  - Disturbance in attention [Fatal]
  - Dizziness [Fatal]
  - Drug dependence [Fatal]
  - Drug withdrawal syndrome [Fatal]
  - Fatigue [Fatal]
  - Feeding disorder [Fatal]
  - Gait disturbance [Fatal]
  - General physical health deterioration [Fatal]
  - Hallucination [Fatal]
  - Headache [Fatal]
  - Insomnia [Fatal]
  - Hypertension [Fatal]
  - Libido disorder [Fatal]
  - Memory impairment [Fatal]
  - Mental disorder [Fatal]
  - Nightmare [Fatal]
  - Pain [Fatal]
  - Paternal exposure during pregnancy [Fatal]
  - Personality change [Fatal]
  - Posture abnormal [Fatal]
  - Pyrexia [Fatal]
  - Sleep disorder [Fatal]
  - Somnolence [Fatal]
  - Suicidal ideation [Fatal]
  - Suicide attempt [Fatal]
  - Tinnitus [Fatal]
  - Tremor [Fatal]
  - Weight decreased [Fatal]
  - Overdose [Fatal]
  - Product use in unapproved indication [Unknown]
  - Muscle spasms [Fatal]
